FAERS Safety Report 6027783-1 (Version None)
Quarter: 2009Q1

REPORT INFORMATION
  Report Type: 
  Country: None (occurrence: None)
  Receive Date: 20090105
  Receipt Date: 20081223
  Transmission Date: 20090719
  Serious: Yes (Other)
  Sender: FDA-Public Use
  Company Number: JP-ROXANE LABORATORIES, INC.-2008-RO-00465RO

PATIENT
  Age: 74 Year
  Sex: Male

DRUGS (7)
  1. CLARITHROMYCIN [Suspect]
     Indication: HELICOBACTER INFECTION
  2. CYCLOPHOSPHAMIDE [Suspect]
     Indication: LYMPHOMA
  3. LANSOPRAZOLE [Suspect]
     Indication: HELICOBACTER INFECTION
  4. AMOXICILLIN [Suspect]
     Indication: HELICOBACTER INFECTION
  5. DOXORUBICIN HCL [Suspect]
     Indication: LYMPHOMA
  6. VINCRISTINE [Suspect]
     Indication: LYMPHOMA
  7. PREDNISOLONE [Suspect]
     Indication: LYMPHOMA

REACTIONS (2)
  - INTERSTITIAL LUNG DISEASE [None]
  - LYMPHOMA [None]
